FAERS Safety Report 17037765 (Version 1)
Quarter: 2019Q4

REPORT INFORMATION
  Report Type: Spontaneous
  Country: DK (occurrence: DK)
  Receive Date: 20191115
  Receipt Date: 20191115
  Transmission Date: 20200122
  Serious: Yes (Hospitalization, Other)
  Sender: FDA-Public Use
  Company Number: DK-BRISTOL-MYERS SQUIBB COMPANY-BMS-2019-108328

PATIENT
  Age: 87 Year
  Sex: Male

DRUGS (17)
  1. MITFORGEN [Suspect]
     Active Substance: METFORMIN HYDROCHLORIDE
     Indication: TYPE 2 DIABETES MELLITUS
     Dosage: 1000 MILLIGRAM, 1 DAY, STYRKE: 500 MG
     Route: 048
     Dates: start: 20190403, end: 20191030
  2. ALLOPURINOL. [Concomitant]
     Active Substance: ALLOPURINOL
     Indication: GOUT
     Dosage: 100 MILLIGRAM, 1 DAY
     Route: 048
     Dates: start: 20180110
  3. POTASSIUM CHLORIDE. [Concomitant]
     Active Substance: POTASSIUM CHLORIDE
     Indication: BLOOD POTASSIUM DECREASED
     Dosage: 750 MILLIGRAM, 1 DAY
     Route: 048
     Dates: start: 20180626
  4. AMLODIPINE [Concomitant]
     Active Substance: AMLODIPINE BESYLATE
     Indication: HYPERTENSION
     Dosage: 10 MILLIGRAM, 1 DAY, STYRKE: 10 MG
     Route: 048
     Dates: start: 20140925
  5. FEXOFENADINE [Concomitant]
     Active Substance: FEXOFENADINE HYDROCHLORIDE
     Indication: PRURITUS
     Dosage: 180 MILLIGRAM, 1 DAY, STYRKE: 180 MG
     Route: 048
     Dates: start: 20170816
  6. DIGOXIN DAK [Concomitant]
     Active Substance: DIGOXIN
     Indication: ARRHYTHMIA
     Dosage: 125 MICROGRAM, 1 DAY, STYRKE: 62.5 ?G
     Route: 048
     Dates: start: 20180703
  7. SPIOLTO RESPIMAT [Concomitant]
     Active Substance: OLODATEROL HYDROCHLORIDE\TIOTROPIUM BROMIDE MONOHYDRATE
     Indication: CHRONIC OBSTRUCTIVE PULMONARY DISEASE
     Dosage: 2 DOSAGE FORM, 1 DAY, STYRKE: 2.5+2.5 MG
     Route: 055
     Dates: start: 20190731
  8. FUROSEMIDE. [Concomitant]
     Active Substance: FUROSEMIDE
     Indication: DIURETIC THERAPY
     Dosage: 80 MILLIGRAM, 1 DAY, STYRKE: 40 MG
     Route: 048
     Dates: start: 20180626
  9. MACROGOL [Concomitant]
     Active Substance: POLYETHYLENE GLYCOLS
     Indication: CONSTIPATION
     Dosage: UNK, AS NECESSARY, DOSIS: 1 BREV EFTER BEHOV, H?JST 3 GANGE DAGLIGT
     Route: 048
     Dates: start: 20160818
  10. PREDNISOLONE. [Concomitant]
     Active Substance: PREDNISOLONE
     Indication: ADRENOCORTICAL STEROID THERAPY
     Dosage: 5 MILLIGRAM, 1 DAY, STYRKE: 2.5 MG
     Route: 048
  11. VERAPAMIL [Concomitant]
     Active Substance: VERAPAMIL HYDROCHLORIDE
     Indication: PRODUCT USED FOR UNKNOWN INDICATION
     Dosage: UNK
     Route: 065
  12. PIVMECILLINAM [Concomitant]
     Active Substance: AMDINOCILLIN PIVOXIL
     Indication: CYSTITIS
     Dosage: 1200 MILLIGRAM, 1 DAY, STYRKE: 400 MG
     Route: 048
     Dates: start: 20180824, end: 20180829
  13. ALFUZOSIN [Concomitant]
     Active Substance: ALFUZOSIN
     Indication: DYSURIA
     Dosage: 10 MILLIGRAM, 1 DAY, STYRKE: 10 MG
     Route: 048
     Dates: start: 20150602
  14. SALBUTAMOL [Concomitant]
     Active Substance: ALBUTEROL
     Indication: BRONCHOSPASM
     Dosage: UNK, AS NECESSARY, STYRKE: 0.1 MG/DOSIS, DOSIS: 1 PUST VED ANFALD
     Route: 055
     Dates: start: 20150408
  15. ENALAPRIL H [Concomitant]
     Indication: HYPERTENSION
     Dosage: 1 DOSAGE FORM, 1 DAY, STYRKE: 20+12.5 MG
     Route: 048
     Dates: start: 20190814
  16. ELIQUIS [Suspect]
     Active Substance: APIXABAN
     Indication: THROMBOSIS PROPHYLAXIS
     Dosage: 5 MILLIGRAM, 1 DAY
     Route: 048
     Dates: start: 2016
  17. PARACETAMOL [Concomitant]
     Active Substance: ACETAMINOPHEN
     Indication: ARTHRALGIA
     Dosage: UNK, AS NECESSARY, DOSIS: 2 TABLETTER EFTER BEHOV, H?JST 4 GANGE DAGLIGT
     Route: 048

REACTIONS (1)
  - Renal impairment [Not Recovered/Not Resolved]

NARRATIVE: CASE EVENT DATE: 201908
